FAERS Safety Report 18017287 (Version 1)
Quarter: 2020Q3

REPORT INFORMATION
  Report Type: Spontaneous
  Country: FR (occurrence: FR)
  Receive Date: 20200713
  Receipt Date: 20200713
  Transmission Date: 20201103
  Serious: Yes (Other)
  Sender: FDA-Public Use
  Company Number: FR-BRISTOL-MYERS SQUIBB COMPANY-BMS-2020-053431

PATIENT
  Age: 57 Year
  Sex: Male

DRUGS (1)
  1. HYDREA [Suspect]
     Active Substance: HYDROXYUREA
     Indication: POLYCYTHAEMIA VERA
     Dosage: 500 MILLIGRAM, EVERY 2 DAYS
     Route: 048
     Dates: start: 20200511, end: 20200608

REACTIONS (4)
  - Weight decreased [Not Recovered/Not Resolved]
  - Hepatocellular injury [Recovering/Resolving]
  - Gamma-glutamyltransferase increased [Not Recovered/Not Resolved]
  - Chromaturia [Not Recovered/Not Resolved]

NARRATIVE: CASE EVENT DATE: 202005
